FAERS Safety Report 6616525-4 (Version None)
Quarter: 2010Q1

REPORT INFORMATION
  Report Type: 
  Country: None (occurrence: None)
  Receive Date: 20100305
  Receipt Date: 20100224
  Transmission Date: 20100710
  Serious: Yes (Hospitalization)
  Sender: FDA-Public Use
  Company Number: US-ABBOTT-10P-163-0628769-00

PATIENT
  Sex: Female
  Weight: 63.5 kg

DRUGS (19)
  1. HUMIRA [Suspect]
     Indication: RHEUMATOID ARTHRITIS
     Route: 058
     Dates: start: 20000913
  2. PROTONIX [Concomitant]
     Indication: GASTROOESOPHAGEAL REFLUX PROPHYLAXIS
     Route: 048
     Dates: start: 20050607
  3. SYNTHROID [Concomitant]
     Indication: HYPOTHYROIDISM
     Route: 048
     Dates: start: 20041103
  4. SYNTHROID [Concomitant]
     Route: 048
     Dates: start: 20080424, end: 20080701
  5. SYNTHROID [Concomitant]
     Route: 048
     Dates: start: 20080702
  6. TESTOSTERONE CR [Concomitant]
     Indication: HORMONE REPLACEMENT THERAPY
     Route: 061
     Dates: start: 20020503
  7. FOLIC ACID [Concomitant]
     Indication: VITAMIN SUPPLEMENTATION
     Route: 048
     Dates: start: 19900101
  8. MULTIPLE VITAMINS [Concomitant]
     Indication: VITAMIN SUPPLEMENTATION
     Route: 048
     Dates: start: 19900101
  9. VITAMIN E [Concomitant]
     Indication: VITAMIN SUPPLEMENTATION
     Route: 048
     Dates: start: 19900101
  10. CALCIUM [Concomitant]
     Indication: MINERAL SUPPLEMENTATION
     Route: 048
     Dates: start: 19900101
  11. NASONEX [Concomitant]
     Indication: RHINITIS SEASONAL
     Dosage: 1 SQUIRT
     Route: 045
     Dates: start: 20070425
  12. FOSAMAX [Concomitant]
     Indication: OSTEOPENIA
     Route: 048
     Dates: start: 20080709
  13. ARAVA [Concomitant]
     Indication: RHEUMATOID ARTHRITIS
     Route: 048
     Dates: start: 20061011
  14. MOBIC [Concomitant]
     Indication: RHEUMATOID ARTHRITIS
     Route: 048
     Dates: start: 20050607
  15. PREDNISONE [Concomitant]
     Indication: RHEUMATOID ARTHRITIS
     Route: 048
     Dates: start: 20061010
  16. PREDNISONE [Concomitant]
     Route: 048
     Dates: start: 20061105
  17. IBUPROFEN [Concomitant]
     Indication: RHEUMATOID ARTHRITIS
     Route: 048
     Dates: start: 20011102
  18. NAPROSYN [Concomitant]
     Indication: RHEUMATOID ARTHRITIS
     Route: 048
     Dates: start: 20040220
  19. ACETAMINOPHEN [Concomitant]
     Indication: RHEUMATOID ARTHRITIS
     Route: 048
     Dates: start: 20040220

REACTIONS (1)
  - FEMALE GENITAL TRACT FISTULA [None]
